FAERS Safety Report 20136877 (Version 2)
Quarter: 2022Q1

REPORT INFORMATION
  Report Type: Spontaneous
  Country: US (occurrence: US)
  Receive Date: 20211201
  Receipt Date: 20220112
  Transmission Date: 20220423
  Serious: No
  Sender: FDA-Public Use
  Company Number: US-MYLANLABS-2021M1075546

PATIENT
  Sex: Male
  Weight: 22.68 kg

DRUGS (4)
  1. SCOPOLAMINE [Suspect]
     Active Substance: SCOPOLAMINE
     Indication: Drooling
     Dosage: 1 MILLIGRAM, Q3D
     Route: 062
     Dates: start: 2017, end: 202110
  2. SCOPOLAMINE [Suspect]
     Active Substance: SCOPOLAMINE
     Dosage: 1 MILLIGRAM, Q3D
     Route: 062
     Dates: start: 20211218
  3. CLOBAZAM [Concomitant]
     Active Substance: CLOBAZAM
     Indication: Seizure prophylaxis
     Dosage: UNK
  4. KEPPRA [Concomitant]
     Active Substance: LEVETIRACETAM
     Indication: Epilepsy
     Dosage: 7 MILLILITER, BID(VIA G-TUBE)

REACTIONS (6)
  - Application site erythema [Not Recovered/Not Resolved]
  - Application site pain [Not Recovered/Not Resolved]
  - Off label use [Not Recovered/Not Resolved]
  - Application site urticaria [Recovered/Resolved]
  - Skin burning sensation [Recovered/Resolved]
  - Skin irritation [Unknown]

NARRATIVE: CASE EVENT DATE: 20210101
